FAERS Safety Report 4504162-7 (Version None)
Quarter: 2004Q4

REPORT INFORMATION
  Report Type: 
  Country: None (occurrence: None)
  Receive Date: 20041115
  Receipt Date: 20041103
  Transmission Date: 20050328
  Serious: Yes (Hospitalization)
  Sender: FDA-Public Use
  Company Number: 25584

PATIENT
  Age: 50 Year
  Sex: Male

DRUGS (1)
  1. ALDARA [Suspect]
     Indication: BASAL CELL CARCINOMA
     Dosage: 5 IN 1 WEEK (S), TOPICAL
     Route: 061
     Dates: start: 20041001, end: 20041001

REACTIONS (4)
  - APPLICATION SITE ERYTHEMA [None]
  - APPLICATION SITE OEDEMA [None]
  - SYNCOPE [None]
  - WHITE BLOOD CELL COUNT INCREASED [None]
